FAERS Safety Report 16067466 (Version 2)
Quarter: 2019Q2

REPORT INFORMATION
  Report Type: Report from Study
  Country: None (occurrence: TR)
  Receive Date: 20190313
  Receipt Date: 20190415
  Transmission Date: 20190711
  Serious: Yes (Hospitalization)
  Sender: FDA-Public Use
  Company Number: TR-ABBVIE-19S-161-2699811-00

PATIENT
  Age: 53 Year
  Sex: Female
  Weight: 75 kg

DRUGS (4)
  1. MADOPAR HBS [Concomitant]
     Active Substance: BENSERAZIDE HYDROCHLORIDE\LEVODOPA
     Indication: PARKINSON^S DISEASE
     Dosage: 1X250 MG
     Route: 048
     Dates: start: 20190305
  2. REQUIP XL [Concomitant]
     Active Substance: ROPINIROLE HYDROCHLORIDE
     Indication: PARKINSON^S DISEASE
     Dosage: 3X8MG
     Route: 048
     Dates: start: 2012
  3. ANZYL [Concomitant]
     Indication: DEPRESSION
     Dosage: 1X15MG
     Route: 048
     Dates: start: 2009
  4. DUODOPA [Suspect]
     Active Substance: CARBIDOPA\LEVODOPA
     Indication: PARKINSON^S DISEASE
     Dosage: MD : 2.20 ML CD : 1.50 ML ED : 0.50 ML
     Route: 050
     Dates: start: 20190305, end: 20190403

REACTIONS (2)
  - Pneumoperitoneum [Recovered/Resolved]
  - Abdominal pain [Recovered/Resolved]

NARRATIVE: CASE EVENT DATE: 20190308
